FAERS Safety Report 10086677 (Version 1)
Quarter: 2014Q2

REPORT INFORMATION
  Report Type: Spontaneous
  Country: US (occurrence: None)
  Receive Date: 20140417
  Receipt Date: 20140417
  Transmission Date: 20141212
  Serious: Yes (Other)
  Sender: FDA-Public Use
  Company Number: None

PATIENT
  Age: 21 Year
  Sex: Female
  Weight: 58.97 kg

DRUGS (1)
  1. NEXPLANON [Suspect]
     Indication: CONTRACEPTION
     Dosage: IMPLANT EVERY 3 YEARS SUBCUTANEOUS
     Dates: start: 20120912, end: 20140314

REACTIONS (2)
  - Pruritus generalised [None]
  - Rash [None]
